FAERS Safety Report 11149282 (Version 7)
Quarter: 2019Q1

REPORT INFORMATION
  Report Type: Report from Study
  Country: US (occurrence: US)
  Receive Date: 20150529
  Receipt Date: 20190221
  Transmission Date: 20190417
  Serious: Yes (Hospitalization, Other)
  Sender: FDA-Public Use
  Company Number: US-ARIAD-2015US004463

PATIENT
  Age: 47 Year
  Sex: Female

DRUGS (7)
  1. FLONASE [Concomitant]
     Active Substance: FLUTICASONE PROPIONATE
     Indication: PRODUCT USED FOR UNKNOWN INDICATION
     Dosage: UNK
  2. LISINOPRIL. [Concomitant]
     Active Substance: LISINOPRIL
     Indication: PRODUCT USED FOR UNKNOWN INDICATION
     Dosage: UNK
  3. PONATINIB [Suspect]
     Active Substance: PONATINIB
     Indication: CHRONIC MYELOID LEUKAEMIA
     Dosage: 30 MG, QD
     Route: 048
     Dates: start: 20140327
  4. OXYCODONE [Concomitant]
     Active Substance: OXYCODONE
     Indication: PRODUCT USED FOR UNKNOWN INDICATION
     Dosage: UNK
  5. LOVENOX [Concomitant]
     Active Substance: ENOXAPARIN SODIUM
     Indication: PRODUCT USED FOR UNKNOWN INDICATION
     Dosage: UNK
  6. METOPROLOL. [Concomitant]
     Active Substance: METOPROLOL
     Indication: PRODUCT USED FOR UNKNOWN INDICATION
  7. PONATINIB [Suspect]
     Active Substance: PONATINIB
     Dosage: 15 MG, QD
     Route: 048

REACTIONS (20)
  - Renal failure [Unknown]
  - Alopecia [Not Recovered/Not Resolved]
  - Nasopharyngitis [Unknown]
  - Pain in extremity [Unknown]
  - Myocardial infarction [Recovered/Resolved]
  - Visual acuity reduced [Unknown]
  - Lung neoplasm malignant [Unknown]
  - Sleep disorder [Unknown]
  - Gastric ulcer [Unknown]
  - Diarrhoea [Not Recovered/Not Resolved]
  - Constipation [Not Recovered/Not Resolved]
  - Depression [Unknown]
  - Nausea [Not Recovered/Not Resolved]
  - Muscle spasms [Unknown]
  - Blood pressure increased [Unknown]
  - Decreased appetite [Unknown]
  - Colon cancer [Unknown]
  - Haematemesis [Unknown]
  - Vomiting [Unknown]
  - Feeling abnormal [Unknown]

NARRATIVE: CASE EVENT DATE: 2014
